FAERS Safety Report 10200713 (Version 1)
Quarter: 2014Q2

REPORT INFORMATION
  Report Type: Spontaneous
  Country: CN (occurrence: CN)
  Receive Date: 20140528
  Receipt Date: 20140528
  Transmission Date: 20141212
  Serious: Yes (Other)
  Sender: FDA-Public Use
  Company Number: CN-BRISTOL-MYERS SQUIBB COMPANY-20787982

PATIENT
  Age: 52 Year
  Sex: Female

DRUGS (1)
  1. GLUCOPHAGE TABS [Suspect]
     Indication: TYPE 2 DIABETES MELLITUS
     Route: 048
     Dates: start: 20140424

REACTIONS (3)
  - Benign uterine neoplasm [Unknown]
  - Abdominal discomfort [Unknown]
  - Abdominal distension [Unknown]
